FAERS Safety Report 24464657 (Version 1)
Quarter: 2024Q4

REPORT INFORMATION
  Report Type: Report from Study
  Country: DE (occurrence: DE)
  Receive Date: 20241018
  Receipt Date: 20241018
  Transmission Date: 20250115
  Serious: Yes (Other)
  Sender: TEVA
  Company Number: DE-ROCHE-3001902

PATIENT
  Age: 58 Year
  Sex: Female
  Weight: 50.7 kg

DRUGS (4)
  1. PACLITAXEL [Suspect]
     Active Substance: PACLITAXEL
     Indication: Breast cancer
     Dosage: DATE OF LAST DOSE PRIOR TO AE: 28/DEC/2021?LAST DOSE PRIOR TO AE: 125 MG? FREQUENCY TEXT:1 PER CYCLE
     Route: 065
     Dates: start: 20211123, end: 20220322
  2. PERTUZUMAB [Suspect]
     Active Substance: PERTUZUMAB
     Indication: Breast cancer
     Dosage: DATE OF LAST DOSE PRIOR TO AE: 14/DEC/2021? FREQUENCY TEXT:1 PER CYCLE
     Route: 042
     Dates: start: 20211214
  3. TRASTUZUMAB [Suspect]
     Active Substance: TRASTUZUMAB
     Indication: Breast cancer
     Dosage: LAST DOSE PRIOR TO EVENT? FREQUENCY TEXT:1 PER CYCLE
     Route: 042
     Dates: start: 20211214
  4. LIDOCAINE [Concomitant]
     Active Substance: LIDOCAINE
     Indication: Product used for unknown indication
     Route: 048
     Dates: start: 20220104

REACTIONS (7)
  - Infusion related reaction [Unknown]
  - Leukopenia [Recovered/Resolved]
  - Mucosal inflammation [Recovered/Resolved]
  - Polyneuropathy [Recovered/Resolved]
  - Cough [Recovered/Resolved]
  - Diarrhoea [Recovered/Resolved]
  - Neutropenia [Recovered/Resolved]

NARRATIVE: CASE EVENT DATE: 20211214
